FAERS Safety Report 4350951-1 (Version None)
Quarter: 2004Q2

REPORT INFORMATION
  Report Type: 
  Country: None (occurrence: None)
  Receive Date: 20040430
  Receipt Date: 20040420
  Transmission Date: 20050107
  Serious: Yes (Other)
  Sender: FDA-Public Use
  Company Number: AU-GLAXOSMITHKLINE-B0331251A

PATIENT
  Sex: Male

DRUGS (1)
  1. ZYBAN [Suspect]
     Dates: start: 20040313

REACTIONS (4)
  - ABNORMAL DREAMS [None]
  - AGGRESSION [None]
  - IRRITABILITY [None]
  - PERSONALITY CHANGE [None]
